FAERS Safety Report 11926989 (Version 1)
Quarter: 2016Q1

REPORT INFORMATION
  Report Type: Spontaneous
  Country: GB (occurrence: GB)
  Receive Date: 20160119
  Receipt Date: 20160119
  Transmission Date: 20160526
  Serious: Yes (Other)
  Sender: FDA-Public Use
  Company Number: GB-TEVA-625024ACC

PATIENT
  Age: 44 Year
  Sex: Female
  Weight: 126 kg

DRUGS (8)
  1. MOMETASONE [Concomitant]
     Active Substance: MOMETASONE
     Dosage: 2 DOSAGE FORMS DAILY; 2 DOSAGE FORM; ON SPRAY IN BOTH NOSTRILS.
     Route: 045
     Dates: start: 20150521
  2. BECLOMETASONE [Concomitant]
     Active Substance: BECLOMETHASONE DIPROPIONATE
     Dosage: 4 DOSAGE FORMS DAILY; 2 DOSAGE FORM; ONE IN EACH NOSTRIL MORNING AND EVENING
     Route: 045
     Dates: start: 20151217
  3. LEVOTHYROXINE. [Concomitant]
     Active Substance: LEVOTHYROXINE
     Dosage: 1 DOSAGE FORMS DAILY; 1 DOSAGE FORM; EACH MORNING BEFORE BREAKFAST.
     Dates: start: 20150521
  4. DOXYCYCLINE. [Suspect]
     Active Substance: DOXYCYCLINE
     Dates: start: 20151231
  5. QUININE [Concomitant]
     Active Substance: QUININE
     Dosage: 1 DOSAGE FORMS DAILY;
     Dates: start: 20151013
  6. ORLISTAT [Concomitant]
     Active Substance: ORLISTAT
     Dosage: 3 DOSAGE FORMS DAILY;
     Dates: start: 20151105, end: 20151203
  7. SODIUM VALPROATE [Concomitant]
     Active Substance: VALPROATE SODIUM
     Dosage: 3 DOSAGE FORMS DAILY;
     Dates: start: 20150521
  8. TOPIRAMATE. [Concomitant]
     Active Substance: TOPIRAMATE
     Dosage: 1 DOSAGE FORMS DAILY; 1 DOSAGE FORM; AT NIGHT
     Dates: start: 20150521

REACTIONS (2)
  - Visual impairment [Recovered/Resolved]
  - Vision blurred [Recovered/Resolved]

NARRATIVE: CASE EVENT DATE: 20151231
